FAERS Safety Report 6622403-7 (Version None)
Quarter: 2010Q1

REPORT INFORMATION
  Report Type: 
  Country: None (occurrence: None)
  Receive Date: 20100310
  Receipt Date: 20100127
  Transmission Date: 20100710
  Serious: No
  Sender: FDA-Public Use
  Company Number: US-BIOGENIDEC-2010BI002853

PATIENT
  Age: 44 Year
  Sex: Female

DRUGS (1)
  1. AVONEX [Suspect]
     Indication: MULTIPLE SCLEROSIS
     Route: 030

REACTIONS (6)
  - CONSTIPATION [None]
  - DYSMENORRHOEA [None]
  - MENSTRUATION IRREGULAR [None]
  - MUSCULAR WEAKNESS [None]
  - POLLAKIURIA [None]
  - VISUAL IMPAIRMENT [None]
